FAERS Safety Report 11840123 (Version 1)
Quarter: 2015Q4

REPORT INFORMATION
  Report Type: Spontaneous
  Country: US (occurrence: US)
  Receive Date: 20151216
  Receipt Date: 20151216
  Transmission Date: 20160305
  Serious: Yes (Other)
  Sender: FDA-Public Use
  Company Number: US-BEH-2015056723

PATIENT
  Sex: Female
  Weight: 103 kg

DRUGS (17)
  1. HIZENTRA [Suspect]
     Active Substance: HUMAN IMMUNOGLOBULIN G
     Indication: IMMUNODEFICIENCY COMMON VARIABLE
     Route: 058
     Dates: start: 20150625
  2. CLONAZEPAM. [Concomitant]
     Active Substance: CLONAZEPAM
  3. PROBIOTIC [Concomitant]
     Active Substance: PROBIOTICS NOS
  4. LEVOTHYROXINE. [Concomitant]
     Active Substance: LEVOTHYROXINE
  5. ADVIL [Concomitant]
     Active Substance: IBUPROFEN
  6. PREMARIN [Concomitant]
     Active Substance: ESTROGENS, CONJUGATED
  7. DIPHENHYDRAMINE. [Concomitant]
     Active Substance: DIPHENHYDRAMINE
  8. CALCIUM [Concomitant]
     Active Substance: CALCIUM
  9. LIDOCAINE. [Concomitant]
     Active Substance: LIDOCAINE
  10. VITAMIN B12 [Concomitant]
     Active Substance: CYANOCOBALAMIN
  11. FISH OIL [Concomitant]
     Active Substance: FISH OIL
  12. WELLBUTRIN XL [Concomitant]
     Active Substance: BUPROPION HYDROCHLORIDE
  13. ADDERALL [Concomitant]
     Active Substance: AMPHETAMINE ASPARTATE\AMPHETAMINE SULFATE\DEXTROAMPHETAMINE SACCHARATE\DEXTROAMPHETAMINE SULFATE
  14. MULTIVITAMINS [Concomitant]
     Active Substance: VITAMINS
  15. HIZENTRA [Suspect]
     Active Substance: HUMAN IMMUNOGLOBULIN G
     Route: 058
     Dates: start: 20150625
  16. ACETAMINOPHEN. [Concomitant]
     Active Substance: ACETAMINOPHEN
  17. EPIPEN [Concomitant]
     Active Substance: EPINEPHRINE

REACTIONS (1)
  - Bacterial infection [Unknown]
